FAERS Safety Report 24005648 (Version 2)
Quarter: 2024Q3

REPORT INFORMATION
  Report Type: Spontaneous
  Country: US (occurrence: US)
  Receive Date: 20240624
  Receipt Date: 20240701
  Transmission Date: 20241017
  Serious: No
  Sender: PFIZER
  Company Number: US-PFIZER INC-202400198667

PATIENT
  Age: 68 Year
  Sex: Female
  Weight: 51.71 kg

DRUGS (1)
  1. LITFULO [Suspect]
     Active Substance: RITLECITINIB TOSYLATE
     Indication: Vitiligo
     Dosage: 50MG 1 CAPSULE A DAY
     Route: 048
     Dates: start: 20240619

REACTIONS (2)
  - Contusion [Recovering/Resolving]
  - Off label use [Unknown]

NARRATIVE: CASE EVENT DATE: 20240620
